FAERS Safety Report 10998897 (Version 1)
Quarter: 2015Q2

REPORT INFORMATION
  Report Type: Spontaneous
  Country: US (occurrence: US)
  Receive Date: 20150408
  Receipt Date: 20150408
  Transmission Date: 20150821
  Serious: No
  Sender: FDA-Public Use
  Company Number: US-SA-2014SA055626

PATIENT
  Age: 43 Year
  Sex: Male

DRUGS (1)
  1. ALLEGRA [Suspect]
     Active Substance: FEXOFENADINE HYDROCHLORIDE
     Indication: PRODUCT USED FOR UNKNOWN INDICATION
     Route: 065
     Dates: end: 20140423

REACTIONS (6)
  - Pharyngeal disorder [Unknown]
  - Multiple allergies [Unknown]
  - Malaise [Unknown]
  - Visual impairment [Unknown]
  - Drug ineffective [Unknown]
  - Dysphonia [Unknown]
